FAERS Safety Report 6086925-2 (Version None)
Quarter: 2009Q1

REPORT INFORMATION
  Report Type: 
  Country: None (occurrence: None)
  Receive Date: 20090223
  Receipt Date: 20090216
  Transmission Date: 20090719
  Serious: Yes (Other)
  Sender: FDA-Public Use
  Company Number: US-AVENTIS-200911275US

PATIENT
  Sex: Male

DRUGS (4)
  1. LANTUS [Suspect]
     Route: 058
  2. CHOLESTEROL- AND TRIGLYCERIDE REDUCERS [Concomitant]
     Dosage: DOSE: UNK
  3. ANTIHYPERTENSIVES [Concomitant]
     Dosage: DOSE: UNK
  4. UNKNOWN DRUG [Concomitant]
     Dosage: DOSE: UNK

REACTIONS (2)
  - CEREBROVASCULAR ACCIDENT [None]
  - MYOCARDIAL INFARCTION [None]
